FAERS Safety Report 8403462-8 (Version None)
Quarter: 2012Q2

REPORT INFORMATION
  Report Type: 
  Country: None (occurrence: None)
  Receive Date: 20120601
  Receipt Date: 20120523
  Transmission Date: 20120825
  Serious: Yes (Disabling, Other)
  Sender: FDA-Public Use
  Company Number: US-ELI_LILLY_AND_COMPANY-US201205010334

PATIENT
  Sex: Male

DRUGS (2)
  1. METFORMIN HCL [Concomitant]
  2. HUMULIN R [Suspect]
     Indication: TYPE 2 DIABETES MELLITUS
     Dosage: UNK UNK, UNKNOWN
     Dates: start: 20050101

REACTIONS (7)
  - MACULAR DEGENERATION [None]
  - EYE HAEMORRHAGE [None]
  - CARDIAC DISORDER [None]
  - INCORRECT STORAGE OF DRUG [None]
  - BRAIN INJURY [None]
  - AUTONOMIC NERVOUS SYSTEM IMBALANCE [None]
  - DIABETIC RETINOPATHY [None]
